FAERS Safety Report 7095152-1 (Version None)
Quarter: 2010Q4

REPORT INFORMATION
  Report Type: 
  Country: None (occurrence: None)
  Receive Date: 20101109
  Receipt Date: 20101109
  Transmission Date: 20110411
  Serious: Yes (Other)
  Sender: FDA-Public Use
  Company Number: None

PATIENT
  Age: 47 Year
  Sex: Male
  Weight: 104.3273 kg

DRUGS (1)
  1. ICY HOT MEDICATED PATCH EXTRA STRENGTH CHATTEM INC [Suspect]
     Indication: BACK PAIN
     Dosage: PATCH 3 X TOP
     Route: 061
     Dates: start: 20101028, end: 20101030

REACTIONS (1)
  - HEAT RASH [None]
